FAERS Safety Report 16140304 (Version 1)
Quarter: 2019Q2

REPORT INFORMATION
  Report Type: Spontaneous
  Country: US (occurrence: US)
  Receive Date: 20190329
  Receipt Date: 20190329
  Transmission Date: 20190711
  Serious: Yes (Other)
  Sender: FDA-Public Use
  Company Number: None

PATIENT
  Age: 69 Year
  Sex: Male
  Weight: 103.95 kg

DRUGS (1)
  1. DULOXETINE. [Suspect]
     Active Substance: DULOXETINE
     Indication: MOOD SWINGS
     Route: 048
     Dates: start: 20181113, end: 20181203

REACTIONS (6)
  - Feeling abnormal [None]
  - Tremor [None]
  - Loss of consciousness [None]
  - Overdose [None]
  - Incorrect dose administered [None]
  - Confusional state [None]

NARRATIVE: CASE EVENT DATE: 20181203
